FAERS Safety Report 20477633 (Version 1)
Quarter: 2022Q1

REPORT INFORMATION
  Report Type: Spontaneous
  Country: TR (occurrence: TR)
  Receive Date: 20220216
  Receipt Date: 20220216
  Transmission Date: 20220423
  Serious: Yes (Other)
  Sender: FDA-Public Use
  Company Number: TR-TWI PHARMACEUTICAL, INC-2022SCTW000006

PATIENT

DRUGS (2)
  1. MELPHALAN HYDROCHLORIDE [Suspect]
     Active Substance: MELPHALAN HYDROCHLORIDE
     Indication: Bone marrow conditioning regimen
     Dosage: 200 MILLIGRAM/SQ. METER
     Route: 065
  2. UNSPECIFIED INGREDIENT [Concomitant]
     Active Substance: UNSPECIFIED INGREDIENT
     Indication: Product used for unknown indication
     Dosage: 122 MILLIGRAM/SQ. METER
     Route: 065

REACTIONS (2)
  - Supraventricular tachycardia [Unknown]
  - Off label use [Unknown]
